FAERS Safety Report 9283694 (Version 2)
Quarter: 2013Q2

REPORT INFORMATION
  Report Type: Spontaneous
  Country: US (occurrence: US)
  Receive Date: 20130510
  Receipt Date: 20130625
  Transmission Date: 20140414
  Serious: Yes (Death)
  Sender: FDA-Public Use
  Company Number: US-GLAXOSMITHKLINE-A1022817A

PATIENT
  Age: 76 Year
  Sex: Female

DRUGS (7)
  1. PROMACTA [Suspect]
     Indication: AUTOIMMUNE THROMBOCYTOPENIA
     Dosage: 75MG PER DAY
     Route: 065
     Dates: start: 20130116
  2. CHEMOTHERAPY [Concomitant]
  3. NEURONTIN [Concomitant]
  4. CYMBALTA [Concomitant]
  5. LEVOXYL [Concomitant]
  6. DEXAMETHASONE [Concomitant]
  7. OXYGEN [Concomitant]

REACTIONS (2)
  - Lung cancer metastatic [Fatal]
  - Platelet count decreased [Unknown]
